FAERS Safety Report 21964167 (Version 10)
Quarter: 2024Q1

REPORT INFORMATION
  Report Type: Spontaneous
  Country: US (occurrence: US)
  Receive Date: 20230207
  Receipt Date: 20240122
  Transmission Date: 20240410
  Serious: No
  Sender: FDA-Public Use
  Company Number: US-PFIZER INC-PV202300021881

PATIENT
  Age: 55 Year
  Sex: Female
  Weight: 73.469 kg

DRUGS (3)
  1. SOMAVERT [Suspect]
     Active Substance: PEGVISOMANT
     Indication: Acromegaly
     Dosage: 10 MG, 1X/DAY
     Route: 058
     Dates: start: 20221108
  2. SOMAVERT [Suspect]
     Active Substance: PEGVISOMANT
     Dosage: 10 MG, DAILY
     Route: 058
     Dates: start: 20230106
  3. LANREOTIDE [Concomitant]
     Active Substance: LANREOTIDE
     Indication: Acromegaly
     Dosage: UNK
     Route: 058

REACTIONS (6)
  - Product dose omission in error [Unknown]
  - Injection site bruising [Unknown]
  - Nausea [Recovering/Resolving]
  - Blood glucose decreased [Unknown]
  - Abdominal pain upper [Not Recovered/Not Resolved]
  - Insulin-like growth factor abnormal [Unknown]

NARRATIVE: CASE EVENT DATE: 20230301
